FAERS Safety Report 5076168-3 (Version None)
Quarter: 2006Q3

REPORT INFORMATION
  Report Type: 
  Country: None (occurrence: None)
  Receive Date: 20060807
  Receipt Date: 20060727
  Transmission Date: 20061208
  Serious: Yes (Other)
  Sender: FDA-Public Use
  Company Number: SPV1-2006-00285

PATIENT
  Sex: Male

DRUGS (1)
  1. CARBATROL (CARBAMAZEPINE, CARBAMAZEPINE) CAPSULE XR [Suspect]
     Indication: EPILEPSY
     Dosage: 500 MG 2X/DAY BID
     Dates: start: 20011101

REACTIONS (2)
  - CONVULSION [None]
  - DRUG INEFFECTIVE [None]
